FAERS Safety Report 8448753-X (Version None)
Quarter: 2012Q2

REPORT INFORMATION
  Report Type: 
  Country: None (occurrence: None)
  Receive Date: 20120613
  Receipt Date: 20120531
  Transmission Date: 20120825
  Serious: Yes (Other)
  Sender: FDA-Public Use
  Company Number: DSJ-2011-24434

PATIENT
  Age: 40 Year
  Sex: Female

DRUGS (2)
  1. OLMESARTAN MEDOXOMIL [Suspect]
     Indication: PRODUCT USED FOR UNKNOWN INDICATION
     Dosage: UNKNOWN
  2. ADALAT [Concomitant]

REACTIONS (6)
  - OLIGOHYDRAMNIOS [None]
  - PRE-ECLAMPSIA [None]
  - PREGNANCY [None]
  - BLOOD PRESSURE SYSTOLIC DECREASED [None]
  - MATERNAL EXPOSURE DURING PREGNANCY [None]
  - DIZZINESS [None]
